FAERS Safety Report 16382828 (Version 2)
Quarter: 2019Q2

REPORT INFORMATION
  Report Type: Report from Study
  Country: MA (occurrence: MA)
  Receive Date: 20190603
  Receipt Date: 20190619
  Transmission Date: 20190711
  Serious: Yes (Hospitalization)
  Sender: FDA-Public Use
  Company Number: MA-EMD SERONO-9094520

PATIENT
  Age: 40 Year
  Sex: Female

DRUGS (1)
  1. REBIF [Suspect]
     Active Substance: INTERFERON BETA-1A
     Indication: PRODUCT USED FOR UNKNOWN INDICATION
     Dates: start: 20150201

REACTIONS (5)
  - Poor peripheral circulation [Recovering/Resolving]
  - Vitamin D deficiency [Unknown]
  - Multiple sclerosis relapse [Recovering/Resolving]
  - Inflammation [Unknown]
  - Anaemia [Unknown]
